FAERS Safety Report 7349484-X (Version None)
Quarter: 2011Q1

REPORT INFORMATION
  Report Type: 
  Country: None (occurrence: None)
  Receive Date: 20110314
  Receipt Date: 20100311
  Transmission Date: 20110831
  Serious: No
  Sender: FDA-Public Use
  Company Number: A0849721A

PATIENT
  Age: 50 Year
  Sex: Female

DRUGS (3)
  1. MULTIVITAMIN [Concomitant]
  2. AUGMENTIN XR [Suspect]
     Indication: BACTERIAL INFECTION
     Dosage: 1000MG TWICE PER DAY
     Route: 048
     Dates: start: 20090307
  3. PROBIOTICS [Concomitant]

REACTIONS (1)
  - DIARRHOEA [None]
